FAERS Safety Report 23380775 (Version 1)
Quarter: 2024Q1

REPORT INFORMATION
  Report Type: Spontaneous
  Country: FR (occurrence: FR)
  Receive Date: 20240109
  Receipt Date: 20240109
  Transmission Date: 20240410
  Serious: Yes (Hospitalization, Other)
  Sender: FDA-Public Use
  Company Number: None

PATIENT
  Age: 43 Year
  Sex: Female
  Weight: 147 kg

DRUGS (3)
  1. FLAGYL [Suspect]
     Active Substance: METRONIDAZOLE\METRONIDAZOLE HYDROCHLORIDE
     Indication: Abdominal wall abscess
     Dosage: UNK
     Route: 042
     Dates: start: 20131227, end: 20140110
  2. LOVENOX [Suspect]
     Active Substance: ENOXAPARIN SODIUM
     Indication: Laparoscopy
     Dosage: UNK
     Dates: start: 20131217
  3. VANCOMYCIN [Suspect]
     Active Substance: VANCOMYCIN
     Indication: Abdominal wall abscess
     Dosage: UNK
     Route: 042
     Dates: start: 20131227, end: 20140110

REACTIONS (1)
  - Drug reaction with eosinophilia and systemic symptoms [Recovered/Resolved]

NARRATIVE: CASE EVENT DATE: 20140104
